FAERS Safety Report 9821867 (Version 1)
Quarter: 2014Q1

REPORT INFORMATION
  Report Type: Spontaneous
  Country: CN (occurrence: CN)
  Receive Date: 20140116
  Receipt Date: 20140116
  Transmission Date: 20141002
  Serious: Yes (Hospitalization)
  Sender: FDA-Public Use
  Company Number: PHHY2014CN002985

PATIENT
  Age: 57 Year
  Sex: Female

DRUGS (1)
  1. CARBAMAZEPINE [Suspect]
     Indication: TONIC CLONIC MOVEMENTS

REACTIONS (6)
  - Hyperglycaemia [Unknown]
  - Status epilepticus [Unknown]
  - Tonic clonic movements [Recovered/Resolved]
  - Hemiparesis [Unknown]
  - Muscular weakness [Unknown]
  - Drug ineffective [Unknown]
